FAERS Safety Report 7052183-5 (Version None)
Quarter: 2010Q4

REPORT INFORMATION
  Report Type: 
  Country: None (occurrence: None)
  Receive Date: 20101019
  Receipt Date: 20101011
  Transmission Date: 20110411
  Serious: Yes (Hospitalization)
  Sender: FDA-Public Use
  Company Number: US-ABBOTT-10P-163-0677963-00

PATIENT
  Sex: Male
  Weight: 79.45 kg

DRUGS (4)
  1. HUMIRA [Suspect]
     Indication: POLYMYOSITIS
     Route: 058
     Dates: start: 20080101
  2. AZATHIOPRINE SODIUM [Concomitant]
     Indication: POLYMYOSITIS
  3. IMURAN [Concomitant]
     Indication: PRODUCT USED FOR UNKNOWN INDICATION
  4. FLOMAX [Concomitant]
     Indication: PRODUCT USED FOR UNKNOWN INDICATION

REACTIONS (5)
  - DEHYDRATION [None]
  - DIZZINESS [None]
  - HEART RATE DECREASED [None]
  - HEART RATE IRREGULAR [None]
  - VENTRICULAR EXTRASYSTOLES [None]
